FAERS Safety Report 7523610-1 (Version None)
Quarter: 2011Q2

REPORT INFORMATION
  Report Type: 
  Country: None (occurrence: None)
  Receive Date: 20110601
  Receipt Date: 20110601
  Transmission Date: 20111010
  Serious: Yes (Other)
  Sender: FDA-Public Use
  Company Number: None

PATIENT
  Age: 65 Year
  Sex: Male

DRUGS (1)
  1. COZAAR [Suspect]
     Dosage: 1 TABLET DAILY

REACTIONS (3)
  - HEADACHE [None]
  - PRODUCT FORMULATION ISSUE [None]
  - HEART RATE INCREASED [None]
